FAERS Safety Report 4990195-3 (Version None)
Quarter: 2006Q2

REPORT INFORMATION
  Report Type: 
  Country: None (occurrence: None)
  Receive Date: 20060503
  Receipt Date: 20060117
  Transmission Date: 20061013
  Serious: Yes (Hospitalization, Other)
  Sender: FDA-Public Use
  Company Number: US-MERCK-0601USA01967

PATIENT
  Sex: Female
  Weight: 81 kg

DRUGS (12)
  1. VIOXX [Suspect]
     Indication: RHEUMATOID ARTHRITIS
     Route: 048
     Dates: start: 19990101, end: 20040101
  2. VIOXX [Suspect]
     Indication: PAIN
     Route: 048
     Dates: start: 19990101, end: 20040101
  3. COUMADIN [Concomitant]
     Indication: ATRIAL FIBRILLATION
     Route: 065
  4. POTASSIUM (UNSPECIFIED) [Concomitant]
     Indication: ROUTINE HEALTH MAINTENANCE
     Route: 065
  5. ACIPHEX [Concomitant]
     Indication: GASTROOESOPHAGEAL REFLUX DISEASE
     Route: 065
  6. LASIX [Concomitant]
     Indication: OEDEMA PERIPHERAL
     Route: 065
     Dates: start: 19850101
  7. TARKA [Concomitant]
     Indication: ATRIAL FIBRILLATION
     Route: 065
  8. LEXAPRO [Concomitant]
     Indication: ATRIAL FIBRILLATION
     Route: 065
  9. CRESTOR [Concomitant]
     Indication: BLOOD TRIGLYCERIDES INCREASED
     Route: 065
  10. DIGOXIN [Concomitant]
     Indication: ATRIAL FIBRILLATION
     Route: 065
  11. ACETAMINOPHEN [Concomitant]
     Indication: ARTHRALGIA
     Route: 065
  12. PLAVIX [Concomitant]
     Route: 065
     Dates: start: 20040201, end: 20040501

REACTIONS (4)
  - CATHETERISATION CARDIAC [None]
  - CEREBROVASCULAR ACCIDENT [None]
  - CORONARY ANGIOPLASTY [None]
  - PAIN IN JAW [None]
